FAERS Safety Report 9657857 (Version 1)
Quarter: 2013Q4

REPORT INFORMATION
  Report Type: Spontaneous
  Country: US (occurrence: US)
  Receive Date: 20131030
  Receipt Date: 20131030
  Transmission Date: 20140711
  Serious: No
  Sender: FDA-Public Use
  Company Number: US-ENDO PHARMACEUTICALS INC.-HCDA20130056

PATIENT
  Age: 57 Year
  Sex: Female

DRUGS (3)
  1. HYDROCODONE/ACETAMINOPHEN 10MG/500MG [Suspect]
     Indication: BACK PAIN
     Dosage: 20/1000 MG
     Route: 048
     Dates: start: 2013, end: 2013
  2. HYDROCODONE/ACETAMINOPHEN 10MG/500MG [Suspect]
     Indication: ARTHRALGIA
  3. MELOXICAM [Concomitant]
     Indication: PAIN
     Dosage: UNKNOWN
     Route: 065
     Dates: end: 2013

REACTIONS (3)
  - Vaginal haemorrhage [Not Recovered/Not Resolved]
  - Tremor [Not Recovered/Not Resolved]
  - Abdominal pain upper [Not Recovered/Not Resolved]
